FAERS Safety Report 7436834-9 (Version None)
Quarter: 2011Q2

REPORT INFORMATION
  Report Type: 
  Country: None (occurrence: None)
  Receive Date: 20110426
  Receipt Date: 20110321
  Transmission Date: 20111010
  Serious: Yes (Hospitalization, Other)
  Sender: FDA-Public Use
  Company Number: US-BAYER-2010-001666

PATIENT
  Age: 26 Year
  Sex: Female
  Weight: 77.098 kg

DRUGS (3)
  1. YASMIN [Suspect]
     Indication: PRODUCT USED FOR UNKNOWN INDICATION
     Dosage: UNK
     Dates: start: 20080201, end: 20090701
  2. ACETAMINOPHEN [Concomitant]
     Indication: PAIN
     Dosage: UNK UNK, Q4HR
  3. YAZ [Suspect]
     Indication: PRODUCT USED FOR UNKNOWN INDICATION
     Dosage: UNK
     Dates: start: 20080201, end: 20090701

REACTIONS (2)
  - GALLBLADDER DISORDER [None]
  - BILIARY COLIC [None]
